FAERS Safety Report 6151597-5 (Version None)
Quarter: 2009Q2

REPORT INFORMATION
  Report Type: 
  Country: None (occurrence: None)
  Receive Date: 20090410
  Receipt Date: 20090330
  Transmission Date: 20091009
  Serious: Yes (Other)
  Sender: FDA-Public Use
  Company Number: US-PFIZER INC-2009175729

PATIENT
  Sex: Female

DRUGS (7)
  1. LYRICA [Suspect]
     Indication: PAIN
     Dosage: 25 MG, UNK
     Dates: start: 20080101
  2. ACETYLSALICYLIC ACID [Concomitant]
     Dosage: UNK
  3. GLUCOSAMINE W/CHONDROITIN SULFATES [Concomitant]
     Dosage: UNK
  4. HERBAL PREPARATION [Concomitant]
     Dosage: UNK
  5. MULTI-VITAMINS [Concomitant]
     Dosage: UNK
  6. CALCIUM [Concomitant]
     Indication: OSTEOPOROSIS
     Dosage: UNK
  7. TERIPARATIDE [Concomitant]
     Dosage: UNK

REACTIONS (8)
  - ANGER [None]
  - INJECTION SITE PRURITUS [None]
  - INJECTION SITE REACTION [None]
  - INJECTION SITE SWELLING [None]
  - OESOPHAGEAL OEDEMA [None]
  - OESOPHAGEAL SPASM [None]
  - RASH [None]
  - URTICARIA [None]
